FAERS Safety Report 6213302-3 (Version None)
Quarter: 2009Q2

REPORT INFORMATION
  Report Type: 
  Country: None (occurrence: None)
  Receive Date: 20090603
  Receipt Date: 20090602
  Transmission Date: 20091009
  Serious: Yes (Death)
  Sender: FDA-Public Use
  Company Number: US-ASTRAZENECA-2009UW03666

PATIENT
  Age: 69 Year
  Sex: Female

DRUGS (2)
  1. SEROQUEL [Suspect]
     Indication: HALLUCINATION
     Route: 048
  2. ARICEPT [Concomitant]

REACTIONS (1)
  - CARDIAC DISORDER [None]
